FAERS Safety Report 5512261-6 (Version None)
Quarter: 2007Q4

REPORT INFORMATION
  Report Type: 
  Country: None (occurrence: None)
  Receive Date: 20071112
  Receipt Date: 20070822
  Transmission Date: 20080405
  Serious: No
  Sender: FDA-Public Use
  Company Number: A0674739A

PATIENT
  Age: 47 Year
  Sex: Male

DRUGS (4)
  1. VERAMYST [Suspect]
     Dosage: 2SPR PER DAY
     Route: 045
  2. SYNTHROID [Concomitant]
  3. CADUET [Concomitant]
  4. HYZAAR [Concomitant]

REACTIONS (4)
  - HYPOAESTHESIA ORAL [None]
  - OEDEMA MOUTH [None]
  - PARAESTHESIA ORAL [None]
  - TONGUE DISCOLOURATION [None]
